FAERS Safety Report 8068956-6 (Version None)
Quarter: 2012Q1

REPORT INFORMATION
  Report Type: 
  Country: None (occurrence: None)
  Receive Date: 20120118
  Receipt Date: 20120102
  Transmission Date: 20120608
  Serious: Yes (Other)
  Sender: FDA-Public Use
  Company Number: FK201200061

PATIENT
  Age: 62 Year
  Sex: Male

DRUGS (2)
  1. CARBOPLATIN [Suspect]
     Indication: SMALL CELL LUNG CANCER STAGE UNSPECIFIED
     Dosage: AUC 5, DAY 1, INTRAVENOUS (NOT OTHERWISE SPECIFIED)
     Route: 042
  2. ETOPOSIDE [Suspect]
     Indication: SMALL CELL LUNG CANCER STAGE UNSPECIFIED
     Dosage: SEE IMAGE
     Route: 042

REACTIONS (10)
  - OLIGURIA [None]
  - INTESTINAL ULCER [None]
  - NEOPLASM PROGRESSION [None]
  - FIBROSIS [None]
  - OEDEMA [None]
  - HYPOTENSION [None]
  - INTESTINAL OBSTRUCTION [None]
  - GASTROINTESTINAL NECROSIS [None]
  - PERFORMANCE STATUS DECREASED [None]
  - HAEMORRHAGE [None]
